FAERS Safety Report 6155424-1 (Version None)
Quarter: 2009Q2

REPORT INFORMATION
  Report Type: 
  Country: None (occurrence: None)
  Receive Date: 20090415
  Receipt Date: 20090407
  Transmission Date: 20091009
  Serious: Yes (Hospitalization)
  Sender: FDA-Public Use
  Company Number: FR-B.I. PHARMACEUTICALS,INC./RIDGEFIELD-2009-FF-00259FF

PATIENT
  Sex: Male

DRUGS (4)
  1. MICARDIS [Suspect]
     Indication: HYPERTENSION
     Route: 048
     Dates: end: 20080821
  2. MICARDIS [Suspect]
     Route: 048
     Dates: start: 20080913, end: 20080923
  3. CLAMOXYL [Concomitant]
     Dosage: 8G
     Route: 042
     Dates: start: 20080821, end: 20080926
  4. TOPALGIC [Concomitant]
     Route: 042
     Dates: start: 20080920, end: 20080922

REACTIONS (6)
  - DERMATITIS EXFOLIATIVE [None]
  - DRUG RASH WITH EOSINOPHILIA AND SYSTEMIC SYMPTOMS [None]
  - EOSINOPHILIA [None]
  - FACE OEDEMA [None]
  - LYMPHADENOPATHY [None]
  - PYREXIA [None]
